FAERS Safety Report 9475276 (Version 1)
Quarter: 2013Q3

REPORT INFORMATION
  Report Type: Spontaneous
  Country: GB (occurrence: GB)
  Receive Date: 20130826
  Receipt Date: 20130826
  Transmission Date: 20140515
  Serious: Yes (Life-Threatening)
  Sender: FDA-Public Use
  Company Number: GB-ROCHE-1265025

PATIENT
  Age: 28 Year
  Sex: Female
  Weight: 64 kg

DRUGS (5)
  1. NAPROXEN [Suspect]
     Indication: PRODUCT USED FOR UNKNOWN INDICATION
     Route: 065
     Dates: start: 20130523
  2. IBUPROFEN [Concomitant]
     Route: 065
     Dates: start: 20130416, end: 20130504
  3. BETAMETHASONE VALERATE [Concomitant]
     Route: 065
     Dates: start: 20130523
  4. CO-CODAMOL [Concomitant]
     Route: 065
     Dates: start: 20130528
  5. FEXOFENADINE [Concomitant]
     Route: 065
     Dates: start: 20130416, end: 20130516

REACTIONS (1)
  - Lip swelling [Recovered/Resolved]
